FAERS Safety Report 24766181 (Version 1)
Quarter: 2024Q4

REPORT INFORMATION
  Report Type: Spontaneous
  Country: AR (occurrence: AR)
  Receive Date: 20241223
  Receipt Date: 20241223
  Transmission Date: 20250114
  Serious: Yes (Other)
  Sender: PFIZER
  Company Number: AR-PFIZER INC-202400328000

PATIENT
  Age: 13 Year
  Sex: Male

DRUGS (1)
  1. GENOTROPIN [Suspect]
     Active Substance: SOMATROPIN
     Indication: Growth hormone deficiency
     Dosage: 1 MG, 7 TIMES PER WEEK
     Dates: start: 20240821, end: 20240902

REACTIONS (2)
  - Crohn^s disease [Unknown]
  - Endocrine disorder [Unknown]
